FAERS Safety Report 5081257-3 (Version None)
Quarter: 2006Q3

REPORT INFORMATION
  Report Type: 
  Country: None (occurrence: None)
  Receive Date: 20060816
  Receipt Date: 20060808
  Transmission Date: 20061208
  Serious: Yes (Other)
  Sender: FDA-Public Use
  Company Number: US-JNJFOC-20060604095

PATIENT
  Sex: Female
  Weight: 92.08 kg

DRUGS (1)
  1. REMICADE [Suspect]
     Indication: PSORIASIS
     Route: 042

REACTIONS (5)
  - ABASIA [None]
  - INFUSION RELATED REACTION [None]
  - MYALGIA [None]
  - PAIN [None]
  - TRISMUS [None]
